FAERS Safety Report 20026723 (Version 1)
Quarter: 2021Q4

REPORT INFORMATION
  Report Type: Spontaneous
  Country: CN (occurrence: CN)
  Receive Date: 20211102
  Receipt Date: 20211102
  Transmission Date: 20220303
  Serious: Yes (Life-Threatening, Other)
  Sender: FDA-Public Use
  Company Number: CN-BAXTER-2021BAX033685

PATIENT
  Age: 52 Year
  Sex: Female
  Weight: 50 kg

DRUGS (7)
  1. CYCLOPHOSPHAMIDE [Suspect]
     Active Substance: CYCLOPHOSPHAMIDE
     Indication: Non-Hodgkin^s lymphoma
     Dosage: CYCLOPHOSPHAMIDE FOR INJECTION 0.8G + 0.9% SODIUM CHLORIDE 100ML; FIRST CYCLE OF CHOP REGIMEN; Q3W
     Route: 041
     Dates: start: 20211003, end: 20211003
  2. SODIUM CHLORIDE [Suspect]
     Active Substance: SODIUM CHLORIDE
     Indication: Medication dilution
     Dosage: CYCLOPHOSPHAMIDE FOR INJECTION 0.8G + 0.9% SODIUM CHLORIDE 100ML; FIRST CYCLE OF CHOP REGIMEN; Q3W
     Route: 041
     Dates: start: 20211003, end: 20211003
  3. SODIUM CHLORIDE [Suspect]
     Active Substance: SODIUM CHLORIDE
     Dosage: FIRST CYCLE OF CHOP REGIMEN; EPIRUBICIN HYDROCHLORIDE 80MG + 0.9% SODIUM CHLORIDE 100ML D1
     Route: 065
     Dates: start: 20211003, end: 20211003
  4. SODIUM CHLORIDE [Suspect]
     Active Substance: SODIUM CHLORIDE
     Dosage: VINDESINE SULFATE FOR INJECTION 3MG + 0.9% SODIUM CHLORIDE 100ML; FIRST CYCLE OF CHOP REGIMEN; Q3W
     Route: 041
     Dates: start: 20211003, end: 20211003
  5. VINDESINE SULFATE [Suspect]
     Active Substance: VINDESINE SULFATE
     Indication: Non-Hodgkin^s lymphoma
     Dosage: VINDESINE SULFATE FOR INJECTION 3MG + 0.9% SODIUM CHLORIDE 100ML; FIRST CYCLE OF CHOP REGIMEN; Q3W
     Route: 041
     Dates: start: 20211003, end: 20211003
  6. EPIRUBICIN HYDROCHLORIDE [Suspect]
     Active Substance: EPIRUBICIN HYDROCHLORIDE
     Indication: Non-Hodgkin^s lymphoma
     Dosage: FIRST CYCLE OF CHOP REGIMEN; EPIRUBICIN HYDROCHLORIDE 80MG + 0.9% SODIUM CHLORIDE 100ML D1
     Route: 065
     Dates: start: 20211003, end: 20211003
  7. PREDNISONE [Suspect]
     Active Substance: PREDNISONE
     Indication: Non-Hodgkin^s lymphoma
     Dosage: DAY 1 TO 5; FIRST CYCLE OF CHOP REGIMEN; DOSAGE FORM: TABLET
     Route: 065
     Dates: start: 20211003, end: 20211007

REACTIONS (3)
  - Alkalosis [Recovering/Resolving]
  - Electrolyte imbalance [Recovering/Resolving]
  - Hypersensitivity [Recovering/Resolving]

NARRATIVE: CASE EVENT DATE: 20211003
